FAERS Safety Report 7052315-9 (Version None)
Quarter: 2010Q4

REPORT INFORMATION
  Report Type: 
  Country: None (occurrence: None)
  Receive Date: 20101018
  Receipt Date: 20101018
  Transmission Date: 20110411
  Serious: Yes (Other)
  Sender: FDA-Public Use
  Company Number: None

PATIENT
  Sex: Female
  Weight: 45.5 kg

DRUGS (10)
  1. RECLAST [Suspect]
     Indication: OSTEOPOROSIS
     Dosage: RECLAST 5 MG YEARLY 042
     Dates: start: 20100527
  2. HYDROCODONE BITARTRATE + ACETAMINOPHEN [Concomitant]
  3. KAPIDEX [Concomitant]
  4. MIRAPEX [Concomitant]
  5. PROAIR HFA [Concomitant]
  6. TOPAMAX [Concomitant]
  7. XANAX [Concomitant]
  8. DURAGESIC-100 [Concomitant]
  9. TRAZODONE [Concomitant]
  10. MORPHINE [Concomitant]

REACTIONS (5)
  - BONE PAIN [None]
  - EXOSTOSIS [None]
  - PAIN [None]
  - PALPITATIONS [None]
  - RHEUMATOID ARTHRITIS [None]
